FAERS Safety Report 8818634 (Version 1)
Quarter: 2012Q4

REPORT INFORMATION
  Report Type: 
  Country: GB (occurrence: GB)
  Receive Date: 20121001
  Receipt Date: 20121001
  Transmission Date: 20130627
  Serious: Yes (Other)
  Sender: FDA-Public Use
  Company Number: PHHY2012GB083068

PATIENT
  Age: 73 Year
  Sex: Female
  Weight: 61 kg

DRUGS (4)
  1. LOSARTAN POTASSIUM [Suspect]
     Dosage: 100 mg, daily
     Route: 048
     Dates: start: 20120612, end: 20120625
  2. INDAPAMIDE [Concomitant]
     Dosage: 2.5 mg, UNK
  3. NAPROXEN [Concomitant]
     Dosage: 500 mg, BID
  4. SIMVASTATIN [Concomitant]
     Dosage: 20 mg, UNK

REACTIONS (3)
  - Respiratory disorder [Unknown]
  - Oropharyngeal pain [Unknown]
  - Pruritus [Unknown]
